FAERS Safety Report 7392256-0 (Version None)
Quarter: 2011Q2

REPORT INFORMATION
  Report Type: 
  Country: None (occurrence: None)
  Receive Date: 20110404
  Receipt Date: 20110328
  Transmission Date: 20111010
  Serious: Yes (Hospitalization, Other)
  Sender: FDA-Public Use
  Company Number: JP-MERCK-1103USA03832

PATIENT
  Age: 79 Year
  Sex: Female
  Weight: 58 kg

DRUGS (11)
  1. JANUVIA [Suspect]
     Indication: DIABETES MELLITUS
     Route: 048
     Dates: start: 20100710, end: 20110305
  2. DIOVAN [Concomitant]
     Indication: HYPERTENSION
     Route: 048
  3. CONIEL [Concomitant]
     Indication: HYPERTENSION
     Route: 048
  4. AMARYL [Concomitant]
     Indication: DIABETES MELLITUS
     Route: 048
     Dates: start: 20100612, end: 20110305
  5. GLYCORAN [Concomitant]
     Indication: DIABETES MELLITUS
     Route: 048
     Dates: end: 20110305
  6. ASPIRIN [Concomitant]
     Indication: MYOCARDIAL INFARCTION
     Route: 048
  7. ALLORIN [Concomitant]
     Indication: BLOOD URIC ACID INCREASED
     Route: 048
  8. PEPCID [Concomitant]
     Indication: PROPHYLAXIS AGAINST GASTROINTESTINAL ULCER
     Route: 048
  9. JANUVIA [Suspect]
     Route: 048
     Dates: start: 20100612, end: 20100709
  10. ARTIST [Concomitant]
     Indication: HYPERTENSION
     Route: 048
  11. LUPRAC [Concomitant]
     Indication: CARDIAC FAILURE CONGESTIVE
     Route: 048

REACTIONS (2)
  - SICK SINUS SYNDROME [None]
  - DIABETES MELLITUS [None]
